FAERS Safety Report 6662642-2 (Version None)
Quarter: 2010Q1

REPORT INFORMATION
  Report Type: 
  Country: None (occurrence: None)
  Receive Date: 20100329
  Receipt Date: 20100316
  Transmission Date: 20100710
  Serious: Yes (Hospitalization, Other)
  Sender: FDA-Public Use
  Company Number: 20108453

PATIENT
  Sex: Female

DRUGS (3)
  1. LIORESAL [Suspect]
     Indication: MUSCLE SPASTICITY
     Dosage: DAILY, INTRATHECAL
     Route: 037
  2. EPIDURAL BLOOD PATCH [Concomitant]
  3. IV KETAMINE [Concomitant]

REACTIONS (2)
  - POST LUMBAR PUNCTURE SYNDROME [None]
  - SWELLING [None]
